FAERS Safety Report 6723820-7 (Version None)
Quarter: 2010Q2

REPORT INFORMATION
  Report Type: 
  Country: None (occurrence: None)
  Receive Date: 20100513
  Receipt Date: 20100223
  Transmission Date: 20101027
  Serious: No
  Sender: FDA-Public Use
  Company Number: A0847454A

PATIENT
  Sex: Male

DRUGS (1)
  1. TREXIMET [Suspect]
     Indication: CLUSTER HEADACHE
     Route: 065

REACTIONS (2)
  - DIARRHOEA [None]
  - DYSPEPSIA [None]
